FAERS Safety Report 12270867 (Version 1)
Quarter: 2016Q2

REPORT INFORMATION
  Report Type: Spontaneous
  Country: US (occurrence: US)
  Receive Date: 20160415
  Receipt Date: 20160415
  Transmission Date: 20160815
  Serious: No
  Sender: FDA-Public Use
  Company Number: US-BAYER-2016-064881

PATIENT
  Sex: Female

DRUGS (2)
  1. ADALAT CC [Suspect]
     Active Substance: NIFEDIPINE
  2. NEXAVAR [Suspect]
     Active Substance: SORAFENIB

REACTIONS (1)
  - Drug hypersensitivity [None]
